FAERS Safety Report 9246933 (Version 1)
Quarter: 2013Q2

REPORT INFORMATION
  Report Type: Report from Study
  Country: US (occurrence: US)
  Receive Date: 20130422
  Receipt Date: 20130422
  Transmission Date: 20140414
  Serious: Yes (Hospitalization)
  Sender: FDA-Public Use
  Company Number: US-ABBOTT-12P-163-1010198-00

PATIENT
  Age: 11 Year
  Sex: Female
  Weight: 39.5 kg

DRUGS (1)
  1. LUPRON DEPOT-PED [Suspect]
     Dates: start: 20100211

REACTIONS (1)
  - Hypertension [Recovering/Resolving]
